FAERS Safety Report 7052375-5 (Version None)
Quarter: 2010Q4

REPORT INFORMATION
  Report Type: 
  Country: None (occurrence: None)
  Receive Date: 20101019
  Receipt Date: 20101012
  Transmission Date: 20110411
  Serious: Yes (Other)
  Sender: FDA-Public Use
  Company Number: CA-JNJCH-2010023358

PATIENT
  Age: 52 Year
  Sex: Female

DRUGS (1)
  1. BENGAY MUSCLE PAIN ULTRA STRENGTH [Suspect]
     Indication: ARTHRALGIA
     Dosage: TEXT:UNKNOWN
     Route: 061

REACTIONS (2)
  - APPLICATION SITE BURN [None]
  - BLISTER [None]
